FAERS Safety Report 24603044 (Version 3)
Quarter: 2025Q2

REPORT INFORMATION
  Report Type: Report from Study
  Country: US (occurrence: US)
  Receive Date: 20241111
  Receipt Date: 20250609
  Transmission Date: 20250716
  Serious: Yes (Other)
  Sender: TRAVERE THERAPEUTICS
  Company Number: US-TRAVERE-2024TVT01061

PATIENT
  Age: 67 Year
  Sex: Female

DRUGS (20)
  1. FILSPARI [Suspect]
     Active Substance: SPARSENTAN
     Indication: Renal disorder
     Dosage: DAY 1-14 (200MG)
     Route: 048
     Dates: start: 20240914, end: 20240927
  2. FILSPARI [Suspect]
     Active Substance: SPARSENTAN
     Indication: IgA nephropathy
     Dosage: DAYS 15-30 (2 TABLETS OF 200MG)
     Route: 048
     Dates: start: 20240928, end: 20241013
  3. FILSPARI [Suspect]
     Active Substance: SPARSENTAN
     Route: 048
     Dates: start: 202411
  4. VENLAFAXINE HYDROCHLORIDE [Concomitant]
     Active Substance: VENLAFAXINE HYDROCHLORIDE
  5. WELLBUTRIN XL [Concomitant]
     Active Substance: BUPROPION HYDROCHLORIDE
  6. FENOFIBRATE [Concomitant]
     Active Substance: FENOFIBRATE
  7. ATORVASTATIN [Concomitant]
     Active Substance: ATORVASTATIN
  8. CARVEDILOL [Concomitant]
     Active Substance: CARVEDILOL
  9. FARXIGA [Concomitant]
     Active Substance: DAPAGLIFLOZIN PROPANEDIOL
  10. BUPROPION [Concomitant]
     Active Substance: BUPROPION
  11. Buprenorphine XR [Concomitant]
  12. LOSARTAN [Concomitant]
     Active Substance: LOSARTAN
  13. AMLODIPINE [Concomitant]
     Active Substance: AMLODIPINE BESYLATE
  14. VITAMIN D3 [Concomitant]
     Active Substance: CHOLECALCIFEROL
  15. FISH OIL [Concomitant]
     Active Substance: FISH OIL
  16. GABAPENTIN [Concomitant]
     Active Substance: GABAPENTIN
  17. HYDROCODONE [Concomitant]
     Active Substance: HYDROCODONE
  18. METHOCARBAMOL [Concomitant]
     Active Substance: METHOCARBAMOL
  19. CIPRO [Concomitant]
     Active Substance: CIPROFLOXACIN HYDROCHLORIDE
  20. CEPHALEXIN [Concomitant]
     Active Substance: CEPHALEXIN

REACTIONS (25)
  - Spinal fracture [Unknown]
  - Sciatica [Unknown]
  - Dry mouth [Unknown]
  - Nausea [Unknown]
  - Retching [Unknown]
  - Decreased appetite [Unknown]
  - Vomiting [Unknown]
  - Blood urea increased [Unknown]
  - Blood creatinine increased [Unknown]
  - Glomerular filtration rate decreased [Unknown]
  - Urine albumin/creatinine ratio increased [Unknown]
  - Red blood cell count decreased [Unknown]
  - Haemoglobin decreased [Unknown]
  - Haematocrit decreased [Unknown]
  - Mean platelet volume increased [Unknown]
  - Faecal occult blood positive [Unknown]
  - Throat irritation [Unknown]
  - Hypersensitivity [Unknown]
  - Off label use [Unknown]
  - Feeling abnormal [Unknown]
  - Blood pressure increased [Unknown]
  - Fatigue [Unknown]
  - Dysuria [Unknown]
  - Urinary incontinence [Unknown]
  - Weight decreased [Unknown]

NARRATIVE: CASE EVENT DATE: 20240914
